FAERS Safety Report 7584188-X (Version None)
Quarter: 2011Q2

REPORT INFORMATION
  Report Type: 
  Country: None (occurrence: None)
  Receive Date: 20110630
  Receipt Date: 20110628
  Transmission Date: 20111010
  Serious: Yes (Death, Hospitalization)
  Sender: FDA-Public Use
  Company Number: US-BRISTOL-MYERS SQUIBB COMPANY-15780935

PATIENT
  Age: 72 Year
  Sex: Male
  Weight: 109 kg

DRUGS (2)
  1. NAPROSYN [Suspect]
  2. IPILIMUMAB [Suspect]
     Indication: MALIGNANT MELANOMA
     Dosage: LAST DOSE ON 09MAY2011 NO OF COURSES: 2 10MG/KGIV(INDUC THERAPY) 10MG/KGIV(MAIN THERAPY) CY:21D
     Route: 042
     Dates: start: 20110418

REACTIONS (8)
  - DYSPHAGIA [None]
  - COLITIS [None]
  - FATIGUE [None]
  - SEPSIS [None]
  - DECREASED APPETITE [None]
  - LARGE INTESTINE PERFORATION [None]
  - MUSCULAR WEAKNESS [None]
  - GAIT DISTURBANCE [None]
